FAERS Safety Report 7864424-2 (Version None)
Quarter: 2011Q4

REPORT INFORMATION
  Report Type: 
  Country: None (occurrence: None)
  Receive Date: 20111028
  Receipt Date: 20111024
  Transmission Date: 20120403
  Serious: Yes (Other)
  Sender: FDA-Public Use
  Company Number: BR-PFIZER INC-2011261139

PATIENT
  Age: 63 Year
  Sex: Male

DRUGS (4)
  1. SPIRONOLACTONE [Suspect]
     Dosage: 25 MG, UNK
  2. ATORVASTATIN CALCIUM [Suspect]
     Dosage: 20 MG, UNK
  3. DIOVAN HCT [Suspect]
     Dosage: 12.5/160 MG
     Dates: start: 20101201
  4. METOPROLOL [Suspect]
     Dosage: 50 MG, UNK

REACTIONS (1)
  - VENTRICULAR TACHYCARDIA [None]
